FAERS Safety Report 25795966 (Version 1)
Quarter: 2025Q3

REPORT INFORMATION
  Report Type: Spontaneous
  Country: US (occurrence: None)
  Receive Date: 20250911
  Receipt Date: 20250911
  Transmission Date: 20251021
  Serious: Yes (Hospitalization)
  Sender: FDA-CTU
  Company Number: None

PATIENT
  Age: 5 Year
  Sex: Female

DRUGS (6)
  1. LUMIZYME [Suspect]
     Active Substance: ALGLUCOSIDASE ALFA
     Indication: Glycogen storage disease type II
     Dosage: FREQUENCY : WEEKLY;?
     Route: 042
  2. BENADRYL ALLERGY CHILDREN [Concomitant]
  3. CHILDRENS TYLENOL [Concomitant]
     Active Substance: ACETAMINOPHEN
  4. CETIRIZINE HYDROCHLORIDE [Concomitant]
     Active Substance: CETIRIZINE HYDROCHLORIDE
  5. ECK CHILDRENS MULTI-VITAM [Concomitant]
  6. ALLEGRA ALLERGY CHILDRENS [Concomitant]

REACTIONS (8)
  - Fall [None]
  - Concussion [None]
  - Asthenia [None]
  - Somnolence [None]
  - Strabismus [None]
  - Contusion [None]
  - Device issue [None]
  - Inappropriate schedule of product administration [None]

NARRATIVE: CASE EVENT DATE: 20250910
